FAERS Safety Report 12769408 (Version 1)
Quarter: 2016Q3

REPORT INFORMATION
  Report Type: Spontaneous
  Country: JP (occurrence: JP)
  Receive Date: 20160921
  Receipt Date: 20160921
  Transmission Date: 20161109
  Serious: Yes (Death, Other)
  Sender: FDA-Public Use
  Company Number: JP-BAYER-2016-137590

PATIENT
  Age: 83 Year
  Sex: Male

DRUGS (1)
  1. STIVARGA [Suspect]
     Active Substance: REGORAFENIB
     Indication: COLORECTAL CANCER
     Dosage: 160 MG, QD
     Route: 048
     Dates: start: 20160627, end: 20160711

REACTIONS (2)
  - Stevens-Johnson syndrome [Fatal]
  - Platelet count decreased [None]

NARRATIVE: CASE EVENT DATE: 20160711
